FAERS Safety Report 4892694-1 (Version None)
Quarter: 2006Q1

REPORT INFORMATION
  Report Type: 
  Country: None (occurrence: None)
  Receive Date: 20060125
  Receipt Date: 20060125
  Transmission Date: 20060701
  Serious: No
  Sender: FDA-Public Use
  Company Number: None

PATIENT
  Age: 64 Year
  Sex: Female
  Weight: 67 kg

DRUGS (14)
  1. PHENYTOIN [Suspect]
     Indication: CONVULSION
     Dosage: 1 GM IV X 1
     Route: 042
     Dates: start: 20050628
  2. RANITIDINE [Concomitant]
  3. APAP TAB [Concomitant]
  4. OXYCODONE [Concomitant]
  5. ATORVASTATIN CALCIUM [Concomitant]
  6. TEMAZEPAM [Concomitant]
  7. DOCUSATE [Concomitant]
  8. BISACODYL [Concomitant]
  9. ASPIRIN [Concomitant]
  10. HEPARIN [Concomitant]
  11. MORPHINE [Concomitant]
  12. PROMETHAZINE [Concomitant]
  13. ONDANSETRON [Concomitant]
  14. SENNA [Concomitant]

REACTIONS (4)
  - LOSS OF CONSCIOUSNESS [None]
  - LYMPHOMA [None]
  - URINARY INCONTINENCE [None]
  - VOMITING [None]
